FAERS Safety Report 9242725 (Version 5)
Quarter: 2014Q2

REPORT INFORMATION
  Report Type: Spontaneous
  Country: US (occurrence: US)
  Receive Date: 20130419
  Receipt Date: 20140515
  Transmission Date: 20141212
  Serious: No
  Sender: FDA-Public Use
  Company Number: US-009507513-1304USA008306

PATIENT
  Sex: Male
  Weight: 95.24 kg

DRUGS (2)
  1. PROPECIA [Suspect]
     Indication: ALOPECIA
     Dosage: 1 MG, UNK
     Route: 048
     Dates: start: 200212
  2. PROSCAR [Suspect]
     Indication: ALOPECIA
     Dosage: UNK
     Route: 048

REACTIONS (11)
  - Peyronie^s disease [Not Recovered/Not Resolved]
  - Cognitive disorder [Not Recovered/Not Resolved]
  - Sexual dysfunction [Not Recovered/Not Resolved]
  - Depression [Not Recovered/Not Resolved]
  - Benign prostatic hyperplasia [Unknown]
  - Fibromyalgia [Unknown]
  - Organic erectile dysfunction [Unknown]
  - Genital herpes [Unknown]
  - Drug administration error [Unknown]
  - Hair transplant [Unknown]
  - Hair transplant [Unknown]
